FAERS Safety Report 8083613-8 (Version None)
Quarter: 2012Q1

REPORT INFORMATION
  Report Type: 
  Country: None (occurrence: None)
  Receive Date: 20120127
  Receipt Date: 20110309
  Transmission Date: 20120608
  Serious: No
  Sender: FDA-Public Use
  Company Number: US-ABBOTT-11P-163-0710691-00

PATIENT
  Sex: Female

DRUGS (2)
  1. HUMIRA [Suspect]
     Indication: PSORIASIS
     Dates: start: 20110124, end: 20110301
  2. LEXAPRO [Concomitant]
     Indication: DEPRESSION

REACTIONS (2)
  - INFLUENZA LIKE ILLNESS [None]
  - ARTHRALGIA [None]
